FAERS Safety Report 8862153 (Version 2)
Quarter: 2012Q4

REPORT INFORMATION
  Report Type: 
  Country: US (occurrence: US)
  Receive Date: 20121026
  Receipt Date: 20121206
  Transmission Date: 20130627
  Serious: Yes (Hospitalization)
  Sender: FDA-Public Use
  Company Number: US-GILEAD-2012-0061976

PATIENT
  Sex: Female

DRUGS (4)
  1. LETAIRIS [Suspect]
     Indication: COR PULMONALE CHRONIC
     Dosage: 10 mg, QD
     Route: 048
     Dates: start: 20110407
  2. LETAIRIS [Suspect]
     Indication: SCLERODERMA
  3. LETAIRIS [Suspect]
     Indication: PULMONARY HYPERTENSION
  4. EPOPROSTENOL [Concomitant]

REACTIONS (4)
  - Electrolyte imbalance [Unknown]
  - Blood potassium increased [Unknown]
  - Hypotension [Unknown]
  - Infusion site irritation [Unknown]
